FAERS Safety Report 21995533 (Version 1)
Quarter: 2023Q1

REPORT INFORMATION
  Report Type: Spontaneous
  Country: US (occurrence: None)
  Receive Date: 20230214
  Receipt Date: 20230214
  Transmission Date: 20230418
  Serious: Yes (Death)
  Sender: FDA-Public Use
  Company Number: None

PATIENT
  Sex: Male
  Weight: 52.7 kg

DRUGS (5)
  1. ODEFSEY [Suspect]
     Active Substance: EMTRICITABINE\RILPIVIRINE HYDROCHLORIDE\TENOFOVIR ALAFENAMIDE FUMARATE
     Indication: HIV infection
     Dosage: FREQUENCY : DAILY;?
     Route: 048
     Dates: start: 20210119
  2. HYDROMORPHONE [Concomitant]
     Active Substance: HYDROMORPHONE
  3. LORAZEPAM [Concomitant]
     Active Substance: LORAZEPAM
  4. TEMAZEPAM [Concomitant]
     Active Substance: TEMAZEPAM
  5. FENTANYL [Concomitant]
     Active Substance: FENTANYL

REACTIONS (1)
  - Death [None]
